FAERS Safety Report 13689409 (Version 1)
Quarter: 2017Q2

REPORT INFORMATION
  Report Type: Spontaneous
  Country: US (occurrence: US)
  Receive Date: 20170626
  Receipt Date: 20170626
  Transmission Date: 20170830
  Serious: Yes (Other)
  Sender: FDA-Public Use
  Company Number: US-GLAXOSMITHKLINE-US2017097243

PATIENT
  Age: 80 Year
  Sex: Female

DRUGS (18)
  1. TANZEUM [Suspect]
     Active Substance: ALBIGLUTIDE
     Indication: TYPE 2 DIABETES MELLITUS
     Dosage: 30 MG, WE
     Route: 042
     Dates: start: 20170611
  2. LOPRESSOR [Concomitant]
     Active Substance: METOPROLOL TARTRATE
  3. HUMALOG [Concomitant]
     Active Substance: INSULIN LISPRO
  4. CALCIUM CITRATE [Concomitant]
     Active Substance: CALCIUM CITRATE
  5. ELIQUIS [Concomitant]
     Active Substance: APIXABAN
  6. MIRAPEX [Concomitant]
     Active Substance: PRAMIPEXOLE DIHYDROCHLORIDE
  7. VOLTAREN [Concomitant]
     Active Substance: DICLOFENAC SODIUM
  8. VENTOLIN [Concomitant]
     Active Substance: ALBUTEROL SULFATE
  9. SYMBICORT [Concomitant]
     Active Substance: BUDESONIDE\FORMOTEROL FUMARATE DIHYDRATE
  10. OMEPRAZOLE. [Concomitant]
     Active Substance: OMEPRAZOLE
  11. DIOVAN [Concomitant]
     Active Substance: VALSARTAN
  12. VITAMIN C [Concomitant]
     Active Substance: ASCORBIC ACID
  13. GABAPENTIN. [Concomitant]
     Active Substance: GABAPENTIN
  14. NASAL SPRAY [Concomitant]
     Active Substance: UNSPECIFIED INGREDIENT
  15. ULORIC [Concomitant]
     Active Substance: FEBUXOSTAT
  16. ALBUTEROL. [Concomitant]
     Active Substance: ALBUTEROL
  17. CRESTOR [Concomitant]
     Active Substance: ROSUVASTATIN CALCIUM
  18. FUROSEMIDE. [Concomitant]
     Active Substance: FUROSEMIDE

REACTIONS (6)
  - Vision blurred [Not Recovered/Not Resolved]
  - Blindness [Unknown]
  - Wrong technique in device usage process [Unknown]
  - Bone density decreased [Not Recovered/Not Resolved]
  - Blood pressure decreased [Recovered/Resolved]
  - Decreased appetite [Not Recovered/Not Resolved]

NARRATIVE: CASE EVENT DATE: 201706
